FAERS Safety Report 6385233-X (Version None)
Quarter: 2009Q4

REPORT INFORMATION
  Report Type: 
  Country: None (occurrence: None)
  Receive Date: 20091002
  Receipt Date: 20090625
  Transmission Date: 20100525
  Serious: No
  Sender: FDA-Public Use
  Company Number: US-ASTRAZENECA-2008UW12447

PATIENT
  Age: 78 Year
  Sex: Female
  Weight: 56.2 kg

DRUGS (4)
  1. ARIMIDEX [Suspect]
     Indication: BREAST CANCER
     Route: 048
  2. BLOOD PRESSURE MEDICATION [Concomitant]
  3. WATER PILL [Concomitant]
  4. OMEPRAZOLE [Concomitant]

REACTIONS (3)
  - CYST [None]
  - DRUG DOSE OMISSION [None]
  - MUSCULOSKELETAL DISCOMFORT [None]
